FAERS Safety Report 9525676 (Version 1)
Quarter: 2013Q1

REPORT INFORMATION
  Report Type: Spontaneous
  Country: US (occurrence: None)
  Receive Date: 20130314
  Receipt Date: 20130314
  Transmission Date: 20140127
  Serious: No
  Sender: FDA-Public Use
  Company Number: 1301USA014565

PATIENT
  Sex: 0

DRUGS (2)
  1. VICTRELIS (BOCEPREVIR) CAPSULE [Suspect]
     Indication: HEPATITIS C
  2. PEGINTRON [Suspect]

REACTIONS (3)
  - Pain [None]
  - Tremor [None]
  - Nausea [None]
